FAERS Safety Report 16046773 (Version 1)
Quarter: 2019Q1

REPORT INFORMATION
  Report Type: Spontaneous
  Country: US (occurrence: US)
  Receive Date: 20190207
  Receipt Date: 20190207
  Transmission Date: 20190418
  Serious: Yes (Other)
  Sender: FDA-Public Use
  Company Number: None

PATIENT

DRUGS (18)
  1. FOSAMAX [Concomitant]
     Active Substance: ALENDRONATE SODIUM
  2. BRIMONIDINE [Concomitant]
     Active Substance: BRIMONIDINE TARTRATE
  3. MATURE MULTI-VITAMINS [Concomitant]
  4. CORICIDIN HBP [Suspect]
     Active Substance: ACETAMINOPHEN\CHLORPHENIRAMINE MALEATE
     Dosage: ?          QUANTITY:-U-*-?LIST ANY RELEVANT T;?
  5. CLONOPIN [Concomitant]
     Active Substance: CLONAZEPAM
  6. TOPROL XL [Concomitant]
     Active Substance: METOPROLOL SUCCINATE
  7. LIPITOR [Concomitant]
     Active Substance: ATORVASTATIN CALCIUM
  8. LANOPROST [Concomitant]
  9. TYLENOL [Concomitant]
     Active Substance: ACETAMINOPHEN
  10. VITAMIN D3 [Concomitant]
     Active Substance: CHOLECALCIFEROL
  11. BUSPAR [Concomitant]
     Active Substance: BUSPIRONE HYDROCHLORIDE
  12. PROSCAR [Concomitant]
     Active Substance: FINASTERIDE
  13. CABERGOLINE. [Concomitant]
     Active Substance: CABERGOLINE
  14. UROXATRAL [Concomitant]
     Active Substance: ALFUZOSIN HYDROCHLORIDE
  15. PROTONIX [Concomitant]
     Active Substance: PANTOPRAZOLE SODIUM
  16. LEXAPRO [Concomitant]
     Active Substance: ESCITALOPRAM OXALATE
  17. LOSARTIN [Concomitant]
     Active Substance: LOSARTAN
  18. BUMETANIDE. [Concomitant]
     Active Substance: BUMETANIDE

REACTIONS (2)
  - Psychomotor hyperactivity [None]
  - Agitation [None]
